FAERS Safety Report 7466317-1 (Version None)
Quarter: 2011Q2

REPORT INFORMATION
  Report Type: 
  Country: None (occurrence: None)
  Receive Date: 20110509
  Receipt Date: 20100729
  Transmission Date: 20111010
  Serious: No
  Sender: FDA-Public Use
  Company Number: US-ALEXION-A201000907

PATIENT
  Sex: Male

DRUGS (6)
  1. EXJADE [Concomitant]
     Dosage: UNK
  2. FOLIC ACID [Concomitant]
     Dosage: UNK
  3. SOLIRIS [Suspect]
     Indication: PAROXYSMAL NOCTURNAL HAEMOGLOBINURIA
     Dosage: 1200 MG, Q2W
     Route: 042
  4. VITAMIN B12                        /00056201/ [Concomitant]
     Dosage: UNK
  5. AMBIEN [Concomitant]
     Dosage: UNK
  6. TYLENOL (CAPLET) [Concomitant]
     Dosage: UNK

REACTIONS (1)
  - EYE IRRITATION [None]
